FAERS Safety Report 22156032 (Version 4)
Quarter: 2025Q4

REPORT INFORMATION
  Report Type: Report from Study
  Country: CA (occurrence: CA)
  Receive Date: 20230330
  Receipt Date: 20251023
  Transmission Date: 20260117
  Serious: Yes (Other)
  Sender: AMGEN
  Company Number: CA-AMGEN-CANSL2020120533

PATIENT
  Age: 57 Year
  Sex: Male

DRUGS (16)
  1. OTEZLA [Suspect]
     Active Substance: APREMILAST
     Indication: Psoriatic arthropathy
     Dosage: 30 MILLIGRAM, BID
     Route: 065
  2. OTEZLA [Suspect]
     Active Substance: APREMILAST
     Dosage: 30 MILLIGRAM, QD
     Route: 065
     Dates: end: 2025
  3. OTEZLA [Suspect]
     Active Substance: APREMILAST
     Dosage: 30 MILLIGRAM, BID
     Route: 065
     Dates: start: 2025, end: 2025
  4. METHOTREXATE SODIUM [Suspect]
     Active Substance: METHOTREXATE SODIUM
     Indication: Product used for unknown indication
     Dosage: 25 MG/ML SOLUTION 1 ML 1 TIME WEEKLY CAN TAKE IN EVENING
     Route: 065
  5. PREDNISONE [Concomitant]
     Active Substance: PREDNISONE
     Dosage: 5 MILLIGRAM, QD WITH FOOD
  6. BETAMETHASONE DIPROPIONATE\CALCIPOTRIENE MONOHYDRATE [Concomitant]
     Active Substance: BETAMETHASONE DIPROPIONATE\CALCIPOTRIENE MONOHYDRATE
     Dosage: 50 MCG - 0.5 MG/GRAM 1 APPLICATION 2 TIMES DAILY, PRN APPLY TO AFFECTED AREAS AS DIRECTED
  7. ATORVASTATIN [Concomitant]
     Active Substance: ATORVASTATIN
     Dosage: 40 MILLIGRAM, ONE TIME DAILY 2 TABLETS
     Route: 048
  8. CLOPIDOGREL [Concomitant]
     Active Substance: CLOPIDOGREL BISULFATE
     Dosage: 75 MILLIGRAM
  9. EZETIMIBE [Concomitant]
     Active Substance: EZETIMIBE
     Dosage: 10 MILLIGRAM, QD
  10. LEVOTHYROXINE [Concomitant]
     Active Substance: LEVOTHYROXINE
     Dosage: 125 MICROGRAM, QD
     Route: 048
  11. FUROSEMIDE [Concomitant]
     Active Substance: FUROSEMIDE
     Dosage: 20 MILLIGRAM, QD, MAY USE ANOTHER 20 MG PRN
  12. METOPROLOL TARTRATE [Concomitant]
     Active Substance: METOPROLOL TARTRATE
     Dosage: 25 MILLIGRAM, QD, MAY USE BID PRN
  13. WARFARIN [Concomitant]
     Active Substance: WARFARIN
     Dosage: 8 MILLIGRAM EVERY 2 DAYS MON/ WED/ FRI, THEN 7 MILLIGRAM OTHER DAYS
  14. PERINDOPRIL ERBUMINE [Concomitant]
     Active Substance: PERINDOPRIL ERBUMINE
     Dosage: 2 MILLIGRAM, QD
     Route: 048
  15. ASPIRIN [Concomitant]
     Active Substance: ASPIRIN
     Dosage: 81 MILLIGRAM, QD, PRN
  16. FOLIC ACID [Concomitant]
     Active Substance: FOLIC ACID
     Indication: Vitamin supplementation
     Dosage: UNK
     Route: 065

REACTIONS (25)
  - Psoriatic arthropathy [Unknown]
  - Cardiac ventricular thrombosis [Unknown]
  - Acute myocardial infarction [Not Recovered/Not Resolved]
  - Cardiac aneurysm [Not Recovered/Not Resolved]
  - Hypothyroidism [Unknown]
  - Acute kidney injury [Unknown]
  - Clostridium difficile infection [Unknown]
  - Left ventricular enlargement [Unknown]
  - Cardiac failure [Not Recovered/Not Resolved]
  - Disability [Unknown]
  - Intervertebral disc degeneration [Unknown]
  - Nausea [Unknown]
  - Decreased appetite [Unknown]
  - Rhinorrhoea [Unknown]
  - Drug ineffective [Unknown]
  - Cough [Unknown]
  - Vomiting [Not Recovered/Not Resolved]
  - Hypertension [Unknown]
  - Limb injury [Unknown]
  - Lipoma excision [Unknown]
  - Tonsillar disorder [Unknown]
  - Gastrooesophageal reflux disease [Not Recovered/Not Resolved]
  - Inappropriate schedule of product administration [Unknown]
  - Malaise [Unknown]
  - Illness [Recovering/Resolving]

NARRATIVE: CASE EVENT DATE: 20190601
